FAERS Safety Report 17666394 (Version 2)
Quarter: 2020Q2

REPORT INFORMATION
  Report Type: Spontaneous
  Country: US (occurrence: US)
  Receive Date: 20200414
  Receipt Date: 20200414
  Transmission Date: 20200713
  Serious: No
  Sender: FDA-Public Use
  Company Number: US-GALDERMA-US2020004452

PATIENT
  Sex: Male

DRUGS (1)
  1. AKLIEF [Suspect]
     Active Substance: TRIFAROTENE
     Indication: PRODUCT USED FOR UNKNOWN INDICATION
     Route: 061

REACTIONS (2)
  - Therapeutic response unexpected [Unknown]
  - Off label use [Unknown]
